FAERS Safety Report 15434979 (Version 4)
Quarter: 2019Q1

REPORT INFORMATION
  Report Type: Spontaneous
  Country: DE (occurrence: DE)
  Receive Date: 20180927
  Receipt Date: 20190301
  Transmission Date: 20190417
  Serious: Yes (Other)
  Sender: FDA-Public Use
  Company Number: DE-PFIZER INC-2018382383

PATIENT
  Age: 56 Year
  Sex: Male

DRUGS (4)
  1. ZOPICLONE [Suspect]
     Active Substance: ZOPICLONE
     Dosage: UNK
  2. LORAZEPAM. [Suspect]
     Active Substance: LORAZEPAM
     Dosage: UNK
  3. MEDIKINET [METHYLPHENIDATE] [Suspect]
     Active Substance: METHYLPHENIDATE
     Dosage: 5 MG, DAILY
  4. SULPIRIDE [Suspect]
     Active Substance: SULPIRIDE
     Dosage: UNK

REACTIONS (4)
  - Cholecystitis [Unknown]
  - Hepatic enzyme increased [Recovering/Resolving]
  - Liver injury [Unknown]
  - Jaundice [Unknown]
